FAERS Safety Report 17811839 (Version 5)
Quarter: 2024Q3

REPORT INFORMATION
  Report Type: Spontaneous
  Country: US (occurrence: US)
  Receive Date: 20200521
  Receipt Date: 20240801
  Transmission Date: 20241017
  Serious: No
  Sender: SANOFI AVENTIS
  Company Number: US-SA-2020SA107924

PATIENT
  Age: 66 Year
  Sex: Male

DRUGS (5)
  1. DUPIXENT [Suspect]
     Active Substance: DUPILUMAB
     Indication: Dermatitis atopic
     Dosage: 600 MG, 1X
     Route: 058
     Dates: start: 202003, end: 202003
  2. DUPIXENT [Suspect]
     Active Substance: DUPILUMAB
     Dosage: 300 MG, QM
     Route: 058
  3. DUPIXENT [Suspect]
     Active Substance: DUPILUMAB
     Dosage: 300 MG, QOW
     Route: 058
  4. OXYCODONE [Concomitant]
     Active Substance: OXYCODONE
     Dosage: UNK
  5. COVID-19 VACCINE [Concomitant]
     Dosage: UNK

REACTIONS (4)
  - Eye disorder [Unknown]
  - Condition aggravated [Unknown]
  - Gastrointestinal pain [Unknown]
  - Intentional product misuse [Unknown]
